FAERS Safety Report 25265133 (Version 1)
Quarter: 2025Q2

REPORT INFORMATION
  Report Type: Spontaneous
  Country: CN (occurrence: CN)
  Receive Date: 20250502
  Receipt Date: 20250502
  Transmission Date: 20250716
  Serious: Yes (Other)
  Sender: NOVARTIS
  Company Number: CN-002147023-NVSC2025CN069711

PATIENT
  Age: 74 Year
  Sex: Female
  Weight: 57 kg

DRUGS (2)
  1. SACUBITRIL\VALSARTAN [Suspect]
     Active Substance: SACUBITRIL\VALSARTAN
     Indication: Hypertension
     Dosage: 0.200 G, BID
     Route: 048
     Dates: start: 20250417, end: 20250417
  2. Qiang li ding xuan [Concomitant]
     Indication: Hypertension
     Dosage: 1.400 G, TID
     Route: 048
     Dates: start: 20250417

REACTIONS (2)
  - Lip swelling [Recovered/Resolved]
  - Lip discolouration [Recovered/Resolved]

NARRATIVE: CASE EVENT DATE: 20250417
